FAERS Safety Report 5474856-8 (Version None)
Quarter: 2007Q4

REPORT INFORMATION
  Report Type: 
  Country: None (occurrence: None)
  Receive Date: 20071002
  Receipt Date: 20070927
  Transmission Date: 20080405
  Serious: No
  Sender: FDA-Public Use
  Company Number: SE-BAXTER-2007BH004542

PATIENT
  Age: 71 Year
  Sex: Male

DRUGS (6)
  1. EXTRANEAL [Suspect]
     Indication: RENAL FAILURE CHRONIC
     Dosage: DOSE UNIT:UNKNOWN
     Route: 033
  2. EXTRANEAL [Suspect]
     Indication: CONGENITAL CYSTIC KIDNEY DISEASE
     Dosage: DOSE UNIT:UNKNOWN
     Route: 033
  3. EXTRANEAL [Suspect]
     Indication: PERITONEAL DIALYSIS
     Dosage: DOSE UNIT:UNKNOWN
     Route: 033
  4. PHYSIOSOL IN PLASTIC CONTAINER [Suspect]
     Indication: RENAL FAILURE CHRONIC
     Dosage: DOSE UNIT:UNKNOWN
     Route: 033
  5. PHYSIOSOL IN PLASTIC CONTAINER [Suspect]
     Indication: CONGENITAL CYSTIC KIDNEY DISEASE
     Dosage: DOSE UNIT:UNKNOWN
     Route: 033
  6. PHYSIOSOL IN PLASTIC CONTAINER [Suspect]
     Indication: PERITONEAL DIALYSIS
     Dosage: DOSE UNIT:UNKNOWN
     Route: 033

REACTIONS (2)
  - ESCHERICHIA INFECTION [None]
  - KIDNEY INFECTION [None]
